FAERS Safety Report 5076992-7 (Version None)
Quarter: 2006Q3

REPORT INFORMATION
  Report Type: 
  Country: None (occurrence: None)
  Receive Date: 20060810
  Receipt Date: 20030303
  Transmission Date: 20061208
  Serious: Yes (Death, Life-Threatening, Hospitalization, Disabling, Other)
  Sender: FDA-Public Use
  Company Number: 2006AP03666

PATIENT
  Age: 24010 Day
  Sex: Female
  Weight: 58 kg

DRUGS (1)
  1. IRESSA [Suspect]
     Indication: NON-SMALL CELL LUNG CANCER STAGE IV
     Route: 048
     Dates: start: 20021015, end: 20030117

REACTIONS (3)
  - PHARYNGOLARYNGEAL PAIN [None]
  - PNEUMONIA [None]
  - RESPIRATORY FAILURE [None]
